FAERS Safety Report 20728264 (Version 2)
Quarter: 2022Q2

REPORT INFORMATION
  Report Type: Report from Study
  Country: US (occurrence: US)
  Receive Date: 20220420
  Receipt Date: 20220422
  Transmission Date: 20220721
  Serious: Yes (Hospitalization)
  Sender: FDA-Public Use
  Company Number: US-ABBVIE-22K-163-4364092-00

PATIENT
  Sex: Female

DRUGS (2)
  1. DUOPA [Suspect]
     Active Substance: CARBIDOPA\LEVODOPA
     Indication: Parkinson^s disease
     Route: 050
     Dates: start: 20211007
  2. DUOPA [Suspect]
     Active Substance: CARBIDOPA\LEVODOPA

REACTIONS (4)
  - Myocardial infarction [Unknown]
  - Syncope [Unknown]
  - Cardiac disorder [Unknown]
  - Device information output issue [Not Recovered/Not Resolved]
